FAERS Safety Report 8134872 (Version 6)
Quarter: 2013Q4

REPORT INFORMATION
  Report Type: Spontaneous
  Country: GB (occurrence: GB)
  Receive Date: 20110914
  Receipt Date: 20131125
  Transmission Date: 20140711
  Serious: Yes (Death, Life-Threatening, Hospitalization, Disabling)
  Sender: FDA-Public Use
  Company Number: GB-RANBAXY-2011R1-47430

PATIENT
  Age: 30 Year
  Sex: Female
  Weight: 63.5 kg

DRUGS (25)
  1. LORAZEPAM [Suspect]
     Indication: SEDATION
     Dosage: UNKNOWN
     Route: 048
     Dates: start: 20110523, end: 20110627
  2. LORAZEPAM [Suspect]
     Route: 065
     Dates: start: 20110224, end: 20110410
  3. CLONAZEPAM [Suspect]
     Indication: SEDATION
     Dosage: UNK
     Route: 048
     Dates: start: 20110224, end: 20110410
  4. MIRTAZAPINE [Suspect]
     Indication: DEPRESSION
     Dosage: 1 MG, QD
     Route: 048
     Dates: start: 20100923, end: 20101108
  5. CODEINE [Suspect]
     Indication: PRODUCT USED FOR UNKNOWN INDICATION
     Dosage: UNK
     Route: 065
     Dates: start: 2002, end: 2002
  6. CODEINE [Suspect]
     Route: 065
     Dates: start: 2002, end: 2002
  7. CODEINE [Suspect]
     Route: 065
     Dates: start: 2008, end: 2008
  8. DOMPERIDONE [Suspect]
     Indication: PRODUCT USED FOR UNKNOWN INDICATION
     Dosage: UNK
     Route: 065
  9. DOMPERIDONE [Suspect]
     Route: 065
  10. OMEPRAZOLE [Suspect]
     Indication: DYSPEPSIA
     Dosage: 20MG,QD
     Route: 065
     Dates: start: 20110525
  11. PAROXETINE [Suspect]
     Indication: DEPRESSION
     Dosage: UNK
     Route: 048
     Dates: start: 19990801, end: 20110706
  12. PAROXETINE [Suspect]
     Indication: POST-TRAUMATIC STRESS DISORDER
  13. TRAMADOL [Suspect]
     Indication: NECK PAIN
     Dosage: UNK
     Route: 048
     Dates: start: 20081201, end: 20101210
  14. TRAMADOL [Suspect]
     Indication: ANALGESIC THERAPY
  15. QUETIAPINE [Suspect]
     Indication: PSYCHOTIC DISORDER
     Dosage: UNK
     Route: 048
     Dates: start: 20110224, end: 20110506
  16. LORAZEPAM [Suspect]
     Indication: SEDATION
     Dosage: UNK
     Route: 065
     Dates: start: 20110224, end: 20110410
  17. AMITRIPTYLINE [Suspect]
     Indication: MUSCLE SPASMS
     Dosage: 25 MG, QD
     Route: 048
     Dates: start: 20110810
  18. CODEINE [Suspect]
     Indication: PRODUCT USED FOR UNKNOWN INDICATION
     Dosage: UNK
     Route: 065
     Dates: start: 2008, end: 2008
  19. DIAZEPAM [Suspect]
     Indication: MUSCLE SPASMS
     Dosage: UNK
     Route: 065
     Dates: start: 20110725
  20. PROCYCLIDINE [Suspect]
     Indication: EXTRAPYRAMIDAL DISORDER
     Dosage: 5MG,TID
     Route: 048
     Dates: start: 20110503, end: 20110510
  21. PROCYCLIDINE [Suspect]
     Route: 065
     Dates: start: 1995, end: 1996
  22. SEROXAT [Suspect]
     Indication: DEPRESSION
     Dosage: 20MG,TID
     Route: 048
     Dates: start: 19990801, end: 201105
  23. SEROXAT [Suspect]
     Route: 048
     Dates: start: 201105, end: 20110706
  24. PROCYCLIDINE [Suspect]
     Indication: OCULOGYRIC CRISIS
     Dosage: UNK
     Route: 065
     Dates: start: 1995, end: 1996
  25. SEROXAT [Suspect]
     Indication: PRODUCT USED FOR UNKNOWN INDICATION
     Dosage: 20 MG, QD
     Route: 048
     Dates: start: 2011, end: 20110706

REACTIONS (2)
  - Drug withdrawal syndrome [Unknown]
  - Serotonin syndrome [Not Recovered/Not Resolved]
